FAERS Safety Report 9776730 (Version 2)
Quarter: 2015Q2

REPORT INFORMATION
  Report Type: Spontaneous
  Country: JP (occurrence: JP)
  Receive Date: 20131220
  Receipt Date: 20150512
  Transmission Date: 20150821
  Serious: Yes (Other)
  Sender: FDA-Public Use
  Company Number: PHHY2013JP147433

PATIENT
  Age: 66 Year
  Sex: Male

DRUGS (9)
  1. FOLINIC ACID [Suspect]
     Active Substance: LEUCOVORIN
     Dosage: 25 PERCENT DOSE REDUCED FOLFIRI, EVERY 2 WEEKS
     Route: 065
  2. BEVACIZUMAB [Concomitant]
     Active Substance: BEVACIZUMAB
     Indication: COLORECTAL CANCER METASTATIC
     Route: 065
  3. PANITUMUMAB [Suspect]
     Active Substance: PANITUMUMAB
     Indication: COLORECTAL CANCER METASTATIC
     Dosage: 6 MG/KG, QW2
     Route: 065
  4. FOLINIC ACID [Suspect]
     Active Substance: LEUCOVORIN
     Indication: COLORECTAL CANCER METASTATIC
     Dosage: 25 PERCENT DOSE REDUCED FOLFOX, EVERY 3 WEEKS
     Route: 065
  5. IRINOTECAN [Suspect]
     Active Substance: IRINOTECAN
     Indication: COLORECTAL CANCER METASTATIC
     Dosage: 25 PERCENT DOSE REDUCED FOLFIRI, EVERY 2 WEEKS
     Route: 065
  6. 5-FLUOROURACIL [Suspect]
     Active Substance: FLUOROURACIL
     Dosage: 25 PERCENT DOSE REDUCED FOLFIRI, EVERY 2 WEEKS
     Route: 065
  7. 5-FLUOROURACIL [Suspect]
     Active Substance: FLUOROURACIL
     Indication: COLORECTAL CANCER METASTATIC
     Dosage: 25 PERCENT DOSE REDUCED FOLFOX, EVERY 3 WEEKS
     Route: 065
  8. OXALIPLATIN. [Suspect]
     Active Substance: OXALIPLATIN
     Indication: COLORECTAL CANCER METASTATIC
     Dosage: 25 PERCENT DOSE REDUCED FOLFOX, EVERY 3 WEEKS
     Route: 065
  9. PANITUMUMAB [Suspect]
     Active Substance: PANITUMUMAB
     Dosage: 6 MG/KG, UNK
     Route: 065

REACTIONS (5)
  - Colorectal cancer metastatic [Unknown]
  - Neurotoxicity [Unknown]
  - Paronychia [Unknown]
  - Malignant neoplasm progression [Unknown]
  - Rash [Unknown]
